FAERS Safety Report 12289330 (Version 3)
Quarter: 2016Q2

REPORT INFORMATION
  Report Type: Spontaneous
  Country: FR (occurrence: FR)
  Receive Date: 20160421
  Receipt Date: 20160505
  Transmission Date: 20160815
  Serious: Yes (Hospitalization, Other)
  Sender: FDA-Public Use
  Company Number: FR-ROCHE-1740785

PATIENT
  Sex: Female

DRUGS (4)
  1. METHYLPREDNISOLONE. [Concomitant]
     Active Substance: METHYLPREDNISOLONE
     Route: 065
  2. ZELBORAF [Suspect]
     Active Substance: VEMURAFENIB
     Indication: MALIGNANT MELANOMA
     Route: 048
     Dates: start: 20151120, end: 20160406
  3. CORTANCYL [Concomitant]
     Active Substance: PREDNISONE
     Route: 065
  4. COTELLIC [Suspect]
     Active Substance: COBIMETINIB
     Indication: MALIGNANT MELANOMA
     Route: 048
     Dates: start: 20151120, end: 20160304

REACTIONS (3)
  - Choroiditis [Not Recovered/Not Resolved]
  - Ocular toxicity [Unknown]
  - Chorioretinal disorder [Unknown]

NARRATIVE: CASE EVENT DATE: 20160115
